FAERS Safety Report 7686610-7 (Version None)
Quarter: 2011Q3

REPORT INFORMATION
  Report Type: 
  Country: None (occurrence: None)
  Receive Date: 20110816
  Receipt Date: 20110816
  Transmission Date: 20111222
  Serious: Yes (Hospitalization)
  Sender: FDA-Public Use
  Company Number: None

PATIENT
  Age: 86 Year
  Sex: Male
  Weight: 68.9 kg

DRUGS (10)
  1. CIPROFLOXACIN [Concomitant]
     Route: 048
  2. PRADAXA [Concomitant]
     Route: 048
  3. DIGOXIN [Concomitant]
     Route: 048
  4. TYLENOL W/ CODEINE NO. 3 [Concomitant]
     Route: 048
  5. PRADAXA [Suspect]
     Indication: ATRIAL FIBRILLATION
     Dosage: 150 MG
     Route: 048
  6. LEVOTHYROXINE SODIUM [Concomitant]
     Route: 048
  7. SIMAVASTATIN [Concomitant]
     Route: 048
  8. METOPROLOL TARTRATE [Concomitant]
     Route: 048
  9. ZYDIS [Concomitant]
     Route: 048
  10. AMLODIPINE [Concomitant]
     Route: 048

REACTIONS (1)
  - URINARY TRACT INFECTION [None]
